FAERS Safety Report 9216731 (Version 1)
Quarter: 2013Q2

REPORT INFORMATION
  Report Type: Spontaneous
  Country: US (occurrence: US)
  Receive Date: 20130405
  Receipt Date: 20130405
  Transmission Date: 20140414
  Serious: Yes (Hospitalization)
  Sender: FDA-Public Use
  Company Number: US-BRACCO-007600

PATIENT
  Age: 50 Year
  Sex: Male

DRUGS (5)
  1. LOTREL [Concomitant]
  2. LIPITOR [Concomitant]
  3. ALL OTHER THERAPEUTIC PRODUCTS [Concomitant]
  4. GASTROGRAFIN [Suspect]
     Indication: COMPUTERISED TOMOGRAM
     Route: 048
     Dates: start: 20120217, end: 20120217
  5. GASTROGRAFIN [Suspect]
     Indication: ABDOMINAL PAIN UPPER
     Route: 048
     Dates: start: 20120217, end: 20120217

REACTIONS (1)
  - Anaphylactic reaction [Recovered/Resolved]
